FAERS Safety Report 16228967 (Version 1)
Quarter: 2019Q2

REPORT INFORMATION
  Report Type: Spontaneous
  Country: US (occurrence: US)
  Receive Date: 20190423
  Receipt Date: 20190423
  Transmission Date: 20190711
  Serious: No
  Sender: FDA-Public Use
  Company Number: US-BAUSCH-BL-2018-013692

PATIENT
  Age: 59 Year
  Sex: Male

DRUGS (1)
  1. ARESTIN [Suspect]
     Active Substance: MINOCYCLINE HYDROCHLORIDE
     Indication: DENTAL CLEANING
     Dosage: ADMINISTERED ONLY ONCE IN ALL QUADRANTS
     Route: 060
     Dates: start: 20180425, end: 20180425

REACTIONS (1)
  - Tongue discolouration [Recovered/Resolved]

NARRATIVE: CASE EVENT DATE: 20180602
